FAERS Safety Report 21693533 (Version 1)
Quarter: 2022Q4

REPORT INFORMATION
  Report Type: Spontaneous
  Country: US (occurrence: US)
  Receive Date: 20221207
  Receipt Date: 20221207
  Transmission Date: 20230112
  Serious: Yes (Hospitalization)
  Sender: FDA-Public Use
  Company Number: US-MYLANLABS-2022M1136469

PATIENT
  Age: 24 Year
  Sex: Male

DRUGS (1)
  1. IBUPROFEN [Suspect]
     Active Substance: IBUPROFEN
     Indication: Alcoholic hangover
     Dosage: UNK
     Route: 065

REACTIONS (3)
  - Acute kidney injury [Recovering/Resolving]
  - Flank pain [Recovered/Resolved]
  - Off label use [Unknown]
